FAERS Safety Report 5148718-X (Version None)
Quarter: 2006Q4

REPORT INFORMATION
  Report Type: 
  Country: None (occurrence: None)
  Receive Date: 20061107
  Receipt Date: 20061024
  Transmission Date: 20070319
  Serious: Yes (Hospitalization)
  Sender: FDA-Public Use
  Company Number: 2006BI014283

PATIENT
  Age: 85 Year
  Sex: Female

DRUGS (10)
  1. AVONEX [Suspect]
     Indication: MULTIPLE SCLEROSIS
     Dates: end: 20051101
  2. AVONEX [Suspect]
     Indication: MULTIPLE SCLEROSIS
     Dosage: 30 UG QW IM
     Route: 030
  3. FOSAMAX [Concomitant]
  4. SYNTHROID [Concomitant]
  5. PREDNISONE TAB [Concomitant]
  6. NEXIUM [Concomitant]
  7. COZAAR [Concomitant]
  8. HYDROCHLOROTHIAZIDE [Concomitant]
  9. COUMADIN [Concomitant]
  10. ZOCOR [Concomitant]

REACTIONS (5)
  - DEHYDRATION [None]
  - NEUROPATHY PERIPHERAL [None]
  - OSTEOARTHRITIS [None]
  - PROGRESSIVE MULTIPLE SCLEROSIS [None]
  - TREATMENT NONCOMPLIANCE [None]
